FAERS Safety Report 17770740 (Version 2)
Quarter: 2020Q4

REPORT INFORMATION
  Report Type: Report from Study
  Country: GB (occurrence: GB)
  Receive Date: 20200512
  Receipt Date: 20201222
  Transmission Date: 20210113
  Serious: Yes (Death)
  Sender: FDA-Public Use
  Company Number: GB-PFIZER INC-2020183404

PATIENT
  Age: 50 Year
  Sex: Male

DRUGS (4)
  1. IRINOTECAN HCL [Suspect]
     Active Substance: IRINOTECAN HYDROCHLORIDE
     Indication: COLORECTAL CANCER METASTATIC
     Dosage: 180 MG/M2, CYCLIC, TWO COURSES, DAY 1 REPEATED EVERY 21 D,
     Route: 042
  2. CALCIUM FOLINATE [Suspect]
     Active Substance: LEUCOVORIN CALCIUM
     Indication: COLORECTAL CANCER METASTATIC
     Dosage: 300 MG/M2, CYCLIC TWO COURSES, CUMULATED DOSES1.2G/M^2,REPEATED EVERY 21 D,
     Route: 042
  3. FLUOROURACIL. [Suspect]
     Active Substance: FLUOROURACIL
     Indication: COLORECTAL CANCER METASTATIC
     Dosage: 700 MG/M2, CYCLIC TWO COURSES CUMULATED DOSE 2.8 G/M^2,REPEATED EVERY 21 D
     Route: 042
  4. OXALIPLATIN. [Suspect]
     Active Substance: OXALIPLATIN
     Indication: COLORECTAL CANCER METASTATIC
     Dosage: 20 MG/M2, CYCLIC TWO COURSES, CUMULATED DOSE PER COURSE 80 MG/M^2  REPEATED EVERY 21 D
     Route: 042

REACTIONS (2)
  - Gastrointestinal fistula [Fatal]
  - Circulatory collapse [Fatal]
